FAERS Safety Report 16197735 (Version 1)
Quarter: 2019Q2

REPORT INFORMATION
  Report Type: Spontaneous
  Country: US (occurrence: US)
  Receive Date: 20190414
  Receipt Date: 20190414
  Transmission Date: 20190711
  Serious: No
  Sender: FDA-Public Use
  Company Number: None

PATIENT
  Age: 71 Year
  Sex: Female
  Weight: 66.6 kg

DRUGS (10)
  1. LATANOPROST. [Concomitant]
     Active Substance: LATANOPROST
  2. TAMOXIFEN [Concomitant]
     Active Substance: TAMOXIFEN
  3. MAGNESIUM [Concomitant]
     Active Substance: MAGNESIUM
  4. KETOROLAC TROMETHAMINE 0.5% EYE DROPS (GENERIC FOR ACULAR) [Suspect]
     Active Substance: KETOROLAC TROMETHAMINE
     Indication: PREOPERATIVE CARE
     Dosage: ?          QUANTITY:1 DROP(S);OTHER ROUTE:EYE DROPS?
     Dates: start: 20190309, end: 20190313
  5. BRIMONIDINE [Concomitant]
     Active Substance: BRIMONIDINE TARTRATE
  6. LEVOTHYROXINE. [Concomitant]
     Active Substance: LEVOTHYROXINE
  7. SALMON OIL [Concomitant]
     Active Substance: FISH OIL
  8. CALCIUM [Concomitant]
     Active Substance: CALCIUM
  9. VIT D [Concomitant]
     Active Substance: VITAMIN D NOS
  10. MULTI VITAMIN [Concomitant]
     Active Substance: VITAMINS

REACTIONS (1)
  - Corneal abrasion [None]

NARRATIVE: CASE EVENT DATE: 20190309
